FAERS Safety Report 6404639-3 (Version None)
Quarter: 2009Q4

REPORT INFORMATION
  Report Type: 
  Country: None (occurrence: None)
  Receive Date: 20091016
  Receipt Date: 20091006
  Transmission Date: 20100525
  Serious: Yes (Other)
  Sender: FDA-Public Use
  Company Number: CA-ELI_LILLY_AND_COMPANY-CA200909003364

PATIENT
  Age: 53 Year
  Sex: Female

DRUGS (8)
  1. CYMBALTA [Suspect]
     Indication: DRUG THERAPY
     Dosage: 60 MG, UNK
     Dates: start: 20090101
  2. CYMBALTA [Suspect]
     Dosage: 30 MG, UNK
     Dates: start: 20090101, end: 20090101
  3. CYMBALTA [Suspect]
     Dosage: 60 MG, UNK
     Dates: start: 20090101
  4. EFFEXOR [Concomitant]
     Dosage: 375 MG, UNK
  5. LITHIUM [Concomitant]
  6. LAMICTAL [Concomitant]
     Dosage: 200 MG, EACH EVENING
  7. SYNTHROID [Concomitant]
  8. SEROQUEL [Concomitant]

REACTIONS (6)
  - ANGER [None]
  - DEPRESSION [None]
  - DRUG WITHDRAWAL SYNDROME [None]
  - MYALGIA [None]
  - OFF LABEL USE [None]
  - SUICIDAL IDEATION [None]
